FAERS Safety Report 6599311-3 (Version None)
Quarter: 2010Q1

REPORT INFORMATION
  Report Type: 
  Country: None (occurrence: None)
  Receive Date: 20100217
  Receipt Date: 20100202
  Transmission Date: 20100710
  Serious: Yes (Life-Threatening)
  Sender: FDA-Public Use
  Company Number: 503865

PATIENT
  Age: 46 Year
  Sex: Female

DRUGS (2)
  1. METHOTREXATE [Suspect]
     Dosage: 1250 MG, INTRAVENOUS
     Route: 042
     Dates: start: 20090618
  2. ANASTROZOLE [Concomitant]

REACTIONS (3)
  - DEEP VEIN THROMBOSIS [None]
  - ENCEPHALITIS [None]
  - STAPHYLOCOCCAL SEPSIS [None]
